FAERS Safety Report 5662470-0 (Version None)
Quarter: 2008Q1

REPORT INFORMATION
  Report Type: 
  Country: None (occurrence: None)
  Receive Date: 20080313
  Receipt Date: 20080305
  Transmission Date: 20080703
  Serious: Yes (Other)
  Sender: FDA-Public Use
  Company Number: PHHY2008JP02958

PATIENT
  Age: 68 Year
  Sex: Male

DRUGS (2)
  1. TEGRETOL [Suspect]
  2. BENIDIPINE HYDROCHLORIDE [Concomitant]

REACTIONS (1)
  - GYNAECOMASTIA [None]
